FAERS Safety Report 18179928 (Version 1)
Quarter: 2020Q3

REPORT INFORMATION
  Report Type: Report from Study
  Country: IT (occurrence: IT)
  Receive Date: 20200821
  Receipt Date: 20200821
  Transmission Date: 20201103
  Serious: Yes (Death, Life-Threatening, Other)
  Sender: FDA-Public Use
  Company Number: IT-ACCORD-196962

PATIENT

DRUGS (2)
  1. DOXORUBICIN [Suspect]
     Active Substance: DOXORUBICIN
     Indication: GASTRIC CANCER
     Dosage: IN SODIUM?CHLORIDE THROUGH A NEBULISER
     Route: 033
  2. CISPLATIN. [Suspect]
     Active Substance: CISPLATIN
     Indication: GASTRIC CANCER
     Dosage: IN SODIUM?CHLORIDE THROUGH A NEBULISER
     Route: 033

REACTIONS (2)
  - Off label use [Unknown]
  - Hepatic failure [Fatal]
